FAERS Safety Report 12941320 (Version 2)
Quarter: 2016Q4

REPORT INFORMATION
  Report Type: Spontaneous
  Country: US (occurrence: US)
  Receive Date: 20161115
  Receipt Date: 20161220
  Transmission Date: 20170207
  Serious: Yes (Other)
  Sender: FDA-Public Use
  Company Number: US-CELGENEUS-USA-2016113720

PATIENT
  Sex: Male

DRUGS (4)
  1. REVLIMID [Suspect]
     Active Substance: LENALIDOMIDE
     Dosage: 20MG
     Route: 048
     Dates: start: 201607
  2. REVLIMID [Suspect]
     Active Substance: LENALIDOMIDE
     Dosage: 25MG
     Route: 048
     Dates: start: 20160819
  3. REVLIMID [Suspect]
     Active Substance: LENALIDOMIDE
     Dosage: 15MG
     Route: 048
     Dates: start: 201612
  4. REVLIMID [Suspect]
     Active Substance: LENALIDOMIDE
     Indication: B-CELL LYMPHOMA
     Dosage: 15MG
     Route: 048
     Dates: start: 201606

REACTIONS (2)
  - Neutropenia [Unknown]
  - Neutrophil count decreased [Unknown]

NARRATIVE: CASE EVENT DATE: 2016
